FAERS Safety Report 8114406-0 (Version None)
Quarter: 2012Q1

REPORT INFORMATION
  Report Type: 
  Country: None (occurrence: None)
  Receive Date: 20120206
  Receipt Date: 20120126
  Transmission Date: 20120608
  Serious: No
  Sender: FDA-Public Use
  Company Number: US-BIOGENIDEC-2012BI003401

PATIENT
  Sex: Female

DRUGS (2)
  1. TYSABRI [Suspect]
     Indication: MULTIPLE SCLEROSIS
     Route: 042
     Dates: start: 20081205, end: 20091106
  2. TYSABRI [Suspect]
     Route: 042
     Dates: start: 20100820

REACTIONS (7)
  - DRUG EFFECT DECREASED [None]
  - DEPRESSION [None]
  - VISUAL IMPAIRMENT [None]
  - MUSCLE SPASMS [None]
  - FATIGUE [None]
  - PAIN [None]
  - INSOMNIA [None]
